FAERS Safety Report 7417231-9 (Version None)
Quarter: 2011Q2

REPORT INFORMATION
  Report Type: 
  Country: None (occurrence: None)
  Receive Date: 20110415
  Receipt Date: 20110404
  Transmission Date: 20111010
  Serious: Yes (Death, Hospitalization, Other)
  Sender: FDA-Public Use
  Company Number: US-TYCO HEALTHCARE/MALLINCKRODT-T200801883

PATIENT
  Sex: Female
  Weight: 81 kg

DRUGS (48)
  1. OXYCODONE [Concomitant]
     Indication: PAIN
     Dosage: 10 MG, BID PRN
     Route: 048
  2. PRIMIDONE [Concomitant]
  3. LOMOTIL                            /00034001/ [Concomitant]
  4. GADOLINIUM [Suspect]
     Indication: NUCLEAR MAGNETIC RESONANCE IMAGING BRAIN
     Dosage: UNK, SINGLE
     Dates: start: 20041024, end: 20041024
  5. OMNISCAN [Suspect]
     Dosage: UNK, SINGLE
     Dates: start: 20010130, end: 20010130
  6. COUMADIN [Concomitant]
     Dosage: 4 MG, QD (QHS)
  7. HUMALOG [Concomitant]
     Dosage: 10 UNITS, QD (PM)
  8. HUMALOG [Concomitant]
     Dosage: 50 IN THE AM; 20 IN THE PM
  9. VENOFER [Concomitant]
     Dosage: 50 MG, MON,WED
     Route: 042
  10. FOLIC ACID [Concomitant]
  11. PREVACID [Concomitant]
  12. PHOSLO [Concomitant]
  13. ZESTRIL [Concomitant]
  14. INSULIN [Concomitant]
  15. FLEXERIL [Concomitant]
     Dosage: 10 MG, TID PRN
     Route: 048
  16. OPTIMARK [Suspect]
     Indication: NUCLEAR MAGNETIC RESONANCE IMAGING BRAIN
     Dosage: UNK
     Route: 042
     Dates: start: 20040611, end: 20040611
  17. OMNISCAN [Suspect]
     Indication: NUCLEAR MAGNETIC RESONANCE IMAGING BRAIN
     Dosage: UNK, SINGLE
     Dates: start: 20001221, end: 20001221
  18. LANOXIN [Concomitant]
     Dosage: 0.125 MG, TUE,THU,SAT,SUN
  19. ZOFRAN [Concomitant]
  20. HYDRALAZINE [Concomitant]
     Dosage: 50 MG, BID
     Route: 048
  21. ZOCOR [Concomitant]
     Dosage: 40 MG, QD
     Route: 048
  22. COUMADIN [Concomitant]
     Dosage: 3 MG, QD
     Route: 048
  23. LOPRESSOR [Concomitant]
     Dosage: 50 MG, BID
     Route: 048
  24. NITROGLYCERIN [Concomitant]
     Route: 060
  25. PLAVIX [Concomitant]
     Dosage: 75 MG, QD (QHS)
     Route: 048
  26. VASOTEC [Concomitant]
     Dosage: 20 MG, BID
     Route: 048
  27. HUMALOG [Concomitant]
     Dosage: 15 UNITS, QD (AM)
  28. ZEMPLAR [Concomitant]
     Dosage: 3 UG, MON,WED,FRI
     Route: 042
  29. ISORDIL [Concomitant]
     Dosage: 10 MG, BID
     Route: 048
  30. COMBIVENT [Concomitant]
  31. XANAX [Concomitant]
  32. ZOLOFT [Concomitant]
  33. DIAZEPAM [Concomitant]
  34. CLONIDINE [Concomitant]
     Indication: CHEST PAIN
     Dosage: 0.1 MG, BID PRN
  35. LONITEN [Concomitant]
     Dosage: 2.5 MG, QD (AM)
     Route: 048
  36. LIPITOR [Concomitant]
     Dosage: 20 MG, QD (NIGHT)
     Route: 048
  37. LEXAPRO [Concomitant]
     Dosage: 20 MG, QD
     Route: 048
  38. NORVASC [Concomitant]
     Dosage: 5 MG, IN AM TUE, THU, SUN
     Route: 048
  39. COREG [Concomitant]
     Dosage: 25 MG, BID
     Route: 048
  40. DILAUDID [Concomitant]
     Dosage: UNK
  41. MAGNEVIST [Suspect]
     Indication: NUCLEAR MAGNETIC RESONANCE IMAGING BRAIN
     Dosage: UNK
     Dates: start: 20041023, end: 20041023
  42. REGLAN [Concomitant]
     Dosage: 10 MG, BID
     Route: 048
  43. NEURONTIN [Concomitant]
     Dosage: 300 MG, QD (QHS)
     Route: 048
  44. QUININE SULFATE [Concomitant]
  45. BENADRYL [Concomitant]
  46. ATACAND [Concomitant]
     Dosage: 32 MG, QD
     Route: 048
  47. PROCRIT                            /00909301/ [Concomitant]
     Dosage: 15000 IU, TUES AND THURS WITH DIALYSIS
     Route: 042
  48. ZELNORM [Concomitant]

REACTIONS (48)
  - CARDIOMYOPATHY [None]
  - STAPHYLOCOCCAL INFECTION [None]
  - DIPLOPIA [None]
  - NEPHROGENIC SYSTEMIC FIBROSIS [None]
  - NECROSIS ISCHAEMIC [None]
  - INTERSTITIAL LUNG DISEASE [None]
  - COORDINATION ABNORMAL [None]
  - FALL [None]
  - VOMITING [None]
  - HAEMANGIOMA [None]
  - THROMBOCYTOPENIA [None]
  - HYPOMAGNESAEMIA [None]
  - FLANK PAIN [None]
  - ABDOMINAL PAIN UPPER [None]
  - ATELECTASIS [None]
  - COUGH [None]
  - DECUBITUS ULCER [None]
  - HEADACHE [None]
  - HYPOAESTHESIA [None]
  - ARTERIOSCLEROSIS [None]
  - HYPOXIA [None]
  - TACHYCARDIA [None]
  - URINARY TRACT INFECTION FUNGAL [None]
  - IMPAIRED GASTRIC EMPTYING [None]
  - HYPERMAGNESAEMIA [None]
  - OESOPHAGEAL CANDIDIASIS [None]
  - BACTERAEMIA [None]
  - RESPIRATORY FAILURE [None]
  - HYPOAESTHESIA FACIAL [None]
  - HYPOGLYCAEMIA [None]
  - GASTRITIS [None]
  - FATIGUE [None]
  - HYPERTENSIVE CRISIS [None]
  - PALPITATIONS [None]
  - DYSPNOEA [None]
  - NAUSEA [None]
  - DYSPHAGIA [None]
  - HYPERPHOSPHATAEMIA [None]
  - FLUID OVERLOAD [None]
  - SPINAL OSTEOARTHRITIS [None]
  - OEDEMA PERIPHERAL [None]
  - CEREBROVASCULAR ACCIDENT [None]
  - PNEUMONIA [None]
  - PLEURISY [None]
  - SPLENOMEGALY [None]
  - ATAXIA [None]
  - LIVER DISORDER [None]
  - CARDIAC MURMUR [None]
